FAERS Safety Report 22137211 (Version 1)
Quarter: 2023Q1

REPORT INFORMATION
  Report Type: Report from Study
  Country: US (occurrence: US)
  Receive Date: 20230324
  Receipt Date: 20230324
  Transmission Date: 20230418
  Serious: Yes (Other)
  Sender: FDA-Public Use
  Company Number: US-ABBVIE-4697071

PATIENT
  Sex: Female

DRUGS (1)
  1. HUMIRA [Suspect]
     Active Substance: ADALIMUMAB
     Indication: Rheumatoid arthritis
     Route: 058
     Dates: start: 20180315

REACTIONS (16)
  - Fractured coccyx [Unknown]
  - Immunodeficiency [Unknown]
  - Arthropathy [Unknown]
  - Contusion [Unknown]
  - Illness [Unknown]
  - Injection site haemorrhage [Unknown]
  - Blast injury [Unknown]
  - Breast pain [Unknown]
  - Injection site pain [Unknown]
  - Breast injury [Unknown]
  - Back pain [Unknown]
  - Arthralgia [Unknown]
  - Hypoaesthesia [Unknown]
  - Pain [Unknown]
  - Pain in extremity [Unknown]
  - Maternal exposure during pregnancy [Unknown]
